FAERS Safety Report 8734399 (Version 2)
Quarter: 2015Q2

REPORT INFORMATION
  Report Type: Report from Study
  Country: US (occurrence: US)
  Receive Date: 20120821
  Receipt Date: 20150407
  Transmission Date: 20150821
  Serious: Yes (Death, Hospitalization)
  Sender: FDA-Public Use
  Company Number: US-ROCHE-1100946

PATIENT
  Sex: Male

DRUGS (3)
  1. HEPARIN [Concomitant]
     Active Substance: HEPARIN SODIUM
     Route: 040
  2. ASPIRIN. [Concomitant]
     Active Substance: ASPIRIN
     Route: 048
  3. ACTIVASE [Suspect]
     Active Substance: ALTEPLASE
     Indication: MYOCARDIAL INFARCTION
     Route: 042

REACTIONS (9)
  - Hypoxia [Unknown]
  - Injury [Unknown]
  - Hypotension [Unknown]
  - Back pain [Unknown]
  - Pain in extremity [Unknown]
  - Death [Fatal]
  - Mental impairment [Unknown]
  - Reocclusion [Unknown]
  - Cardiogenic shock [Unknown]
